FAERS Safety Report 6356427-4 (Version None)
Quarter: 2009Q3

REPORT INFORMATION
  Report Type: 
  Country: None (occurrence: None)
  Receive Date: 20090911
  Receipt Date: 20090911
  Transmission Date: 20100115
  Serious: Yes (Disabling, Other)
  Sender: FDA-Public Use
  Company Number: None

PATIENT
  Age: 57 Year
  Sex: Female
  Weight: 55 kg

DRUGS (4)
  1. ZICAM COLD REMEDY SWABS, (ZINCUM AND GLUCONICUM 2X) [Suspect]
     Indication: NASOPHARYNGITIS
     Dosage: 1 NASAL SWAB-2.1 MG/1 ML INTRANASALLY EVERY 4 HOURS
     Route: 045
     Dates: start: 20090502, end: 20090508
  2. GNC TRIFLEX SOFT CHEWABLES [Concomitant]
  3. GLUCOSAMINE [Concomitant]
  4. CHONDROITIN [Concomitant]

REACTIONS (5)
  - ANOSMIA [None]
  - DYSGEUSIA [None]
  - GLOSSODYNIA [None]
  - HYPOGEUSIA [None]
  - SENSORY DISTURBANCE [None]
